FAERS Safety Report 7784685-8 (Version None)
Quarter: 2011Q3

REPORT INFORMATION
  Report Type: 
  Country: None (occurrence: None)
  Receive Date: 20110928
  Receipt Date: 20110919
  Transmission Date: 20111222
  Serious: Yes (Hospitalization, Other)
  Sender: FDA-Public Use
  Company Number: US-ASTRAZENECA-2011SE52613

PATIENT
  Age: 598 Month
  Sex: Male
  Weight: 74 kg

DRUGS (24)
  1. VENLAFAXINE HYDROCHLORIDE [Concomitant]
     Indication: DEPRESSION
     Route: 048
     Dates: start: 20070101
  2. CRESTOR [Suspect]
     Indication: HYPERCHOLESTEROLAEMIA
     Route: 048
     Dates: start: 20080101
  3. PRAVASTATIN [Concomitant]
     Indication: HYPERLIPIDAEMIA
     Route: 048
     Dates: start: 20090101
  4. FENOFIBRATE [Concomitant]
     Indication: HYPERLIPIDAEMIA
     Route: 048
     Dates: start: 20090101
  5. FENOFIBRATE [Concomitant]
     Indication: HYPERCHOLESTEROLAEMIA
     Route: 048
     Dates: start: 20090101
  6. ASPIRIN [Concomitant]
     Indication: BLOOD DISORDER
     Route: 048
     Dates: start: 20090101
  7. MORPHINE SULFATE [Concomitant]
     Indication: PAIN
     Route: 048
     Dates: start: 20090101
  8. FLUTICASONE PROPIONATE [Concomitant]
     Dosage: 2 SPRAYS EACH NOSTRIL TWO TIMES A DAY
     Route: 045
  9. NITROGLYCERIN [Concomitant]
     Indication: HYPERTENSION
  10. PRAVASTATIN [Concomitant]
     Indication: HYPERCHOLESTEROLAEMIA
     Route: 048
     Dates: start: 20090101
  11. OMEPRAZOLE [Concomitant]
     Indication: ABDOMINAL DISCOMFORT
     Route: 048
     Dates: start: 20070101
  12. PROAIR HFA [Concomitant]
     Indication: ASTHMA
     Dates: start: 20070101
  13. ASCORBIC ACID [Concomitant]
  14. FUROSEMIDE [Concomitant]
     Indication: HYPERTENSION
     Route: 048
  15. TRAZODONE HYDROCHLORIDE [Concomitant]
     Indication: SLEEP DISORDER
     Route: 048
     Dates: start: 20090101
  16. METADERMA [Concomitant]
     Indication: SCAR
  17. ASTEPRO [Concomitant]
     Dosage: 2 SPRAYS EACH NOSTRIL TWO TIMES A DAY
     Route: 045
  18. CRESTOR [Suspect]
     Indication: HYPERLIPIDAEMIA
     Route: 048
     Dates: start: 20080101
  19. ATENOLOL AND CHLORTHALIDONE [Concomitant]
     Indication: BLOOD PRESSURE
     Dosage: 50/25 ONCE DAILY
     Route: 048
     Dates: start: 20090101
  20. SUCRALFATE [Concomitant]
     Indication: ABDOMINAL DISCOMFORT
     Dosage: 1 GM ONCE DAILY
     Route: 048
     Dates: start: 20110801
  21. LORATADINE [Concomitant]
     Indication: HYPERSENSITIVITY
  22. ALPRAZOLAM [Concomitant]
     Indication: PANIC ATTACK
     Route: 048
     Dates: start: 20100101
  23. CARISOPRODOL [Concomitant]
     Indication: ARTHRITIS
     Route: 048
     Dates: start: 20050101
  24. SUPER B COMPLEX [Concomitant]
     Dosage: TWO AT

REACTIONS (8)
  - BLOOD POTASSIUM DECREASED [None]
  - STAPHYLOCOCCAL INFECTION [None]
  - NERVOUSNESS [None]
  - MEMORY IMPAIRMENT [None]
  - PANCREATIC CARCINOMA [None]
  - DIARRHOEA [None]
  - CARCINOID TUMOUR [None]
  - ANKYLOSING SPONDYLITIS [None]
